FAERS Safety Report 7846793-2 (Version None)
Quarter: 2011Q4

REPORT INFORMATION
  Report Type: 
  Country: None (occurrence: None)
  Receive Date: 20111025
  Receipt Date: 20111021
  Transmission Date: 20120403
  Serious: Yes (Other)
  Sender: FDA-Public Use
  Company Number: PHHY2011JP93809

PATIENT
  Sex: Male

DRUGS (6)
  1. AFINITOR [Suspect]
     Indication: METASTATIC RENAL CELL CARCINOMA
     Dosage: 10 MG, DAILY
     Route: 048
     Dates: start: 20110318, end: 20110701
  2. SORAFENIB TOSILATE [Concomitant]
     Indication: METASTATIC RENAL CELL CARCINOMA
     Dosage: 800 MG, UNK
     Route: 048
     Dates: start: 20090518, end: 20110103
  3. FAMOTIDINE [Concomitant]
     Indication: METASTATIC RENAL CELL CARCINOMA
     Dosage: 20 MG, UNK
     Route: 048
     Dates: start: 20110318, end: 20110407
  4. SUNITINIB MALATE [Concomitant]
     Indication: METASTATIC RENAL CELL CARCINOMA
     Dosage: 50 MG, UNK
     Route: 048
     Dates: start: 20110107, end: 20110203
  5. ACETAMINOPHEN [Concomitant]
     Indication: METASTATIC RENAL CELL CARCINOMA
     Dosage: 1800 MG, UNK
     Route: 048
     Dates: start: 20110318
  6. ZOMETA [Suspect]
     Dosage: UNK
     Route: 041
     Dates: end: 20110131

REACTIONS (1)
  - OSTEOMYELITIS [None]
